FAERS Safety Report 24277127 (Version 2)
Quarter: 2024Q4

REPORT INFORMATION
  Report Type: Spontaneous
  Country: US (occurrence: US)
  Receive Date: 20240903
  Receipt Date: 20241007
  Transmission Date: 20250115
  Serious: Yes (Congenital Anomaly, Other)
  Sender: BAYER
  Company Number: US-BAYER-2024A124902

PATIENT

DRUGS (2)
  1. ASPIRIN [Suspect]
     Active Substance: ASPIRIN
  2. VITAMINS NOS [Concomitant]
     Active Substance: VITAMINS

REACTIONS (2)
  - Congenital anomaly [None]
  - Foetal exposure during pregnancy [None]
